FAERS Safety Report 9751502 (Version 1)
Quarter: 2013Q4

REPORT INFORMATION
  Report Type: Spontaneous
  Country: US (occurrence: US)
  Receive Date: 20131212
  Receipt Date: 20131212
  Transmission Date: 20140711
  Serious: Yes (Other)
  Sender: FDA-Public Use
  Company Number: US-NAPPMUNDI-USA-2013-0098007

PATIENT
  Sex: Female

DRUGS (4)
  1. HYDROMORPHONE HCL (SIMILAR TO 19-892) [Suspect]
     Indication: SICKLE CELL ANAEMIA
     Dosage: 60 MG, UNK
     Route: 065
  2. HYDROMORPHONE HCL (SIMILAR TO 19-892) [Suspect]
     Indication: BONE INFARCTION
     Dosage: 80 MG, UNK
     Route: 065
  3. HYDROMORPHONE HCL (SIMILAR TO 19-892) [Suspect]
     Dosage: 100 MG, DAILY
     Route: 048
  4. MORPHINE SULFATE (SIMILAR TO NDA 19-516) [Suspect]
     Indication: PRODUCT USED FOR UNKNOWN INDICATION
     Route: 065

REACTIONS (1)
  - Drug abuse [Not Recovered/Not Resolved]
